FAERS Safety Report 7967632-5 (Version None)
Quarter: 2011Q4

REPORT INFORMATION
  Report Type: 
  Country: None (occurrence: None)
  Receive Date: 20111209
  Receipt Date: 20111205
  Transmission Date: 20120403
  Serious: Yes (Hospitalization, Other)
  Sender: FDA-Public Use
  Company Number: US-PFIZER INC-2011153191

PATIENT
  Sex: Male

DRUGS (1)
  1. CHANTIX [Suspect]
     Indication: SMOKING CESSATION THERAPY
     Dosage: STANDARD PLAN
     Route: 048
     Dates: start: 20100828, end: 20100912

REACTIONS (9)
  - LOSS OF CONSCIOUSNESS [None]
  - GAIT DISTURBANCE [None]
  - JOINT STIFFNESS [None]
  - LIMB CRUSHING INJURY [None]
  - PAIN [None]
  - SUICIDE ATTEMPT [None]
  - JOINT DISLOCATION [None]
  - ANKLE FRACTURE [None]
  - ROAD TRAFFIC ACCIDENT [None]
